FAERS Safety Report 18071259 (Version 1)
Quarter: 2020Q3

REPORT INFORMATION
  Report Type: Spontaneous
  Country: EG (occurrence: EG)
  Receive Date: 20200727
  Receipt Date: 20200727
  Transmission Date: 20201103
  Serious: Yes (Death, Other)
  Sender: FDA-Public Use
  Company Number: EG-SA-2019SA108690

PATIENT

DRUGS (4)
  1. L?CARNITINE [LEVOCARNITINE] [Concomitant]
  2. VITAMIN B [Concomitant]
     Active Substance: VITAMIN B
  3. VITAMIN D [VITAMIN D NOS] [Concomitant]
     Active Substance: VITAMIN D NOS
  4. CEREZYME [Suspect]
     Active Substance: IMIGLUCERASE
     Dosage: 60 U/KG, QOW
     Dates: start: 201712, end: 201807

REACTIONS (5)
  - Full blood count abnormal [Unknown]
  - Product prescribing issue [Unknown]
  - Death [Fatal]
  - Neurological decompensation [Unknown]
  - Condition aggravated [Unknown]
